FAERS Safety Report 18321694 (Version 1)
Quarter: 2020Q3

REPORT INFORMATION
  Report Type: Spontaneous
  Country: PL (occurrence: PL)
  Receive Date: 20200929
  Receipt Date: 20200929
  Transmission Date: 20201103
  Serious: Yes (Disabling)
  Sender: FDA-Public Use
  Company Number: PL-CHEPLA-C20202804

PATIENT
  Age: 20 Year
  Sex: Male

DRUGS (9)
  1. LEVOFLOXACIN. [Concomitant]
     Active Substance: LEVOFLOXACIN
     Indication: OPHTHALMIC HERPES SIMPLEX
  2. GANCICLOVIR. [Suspect]
     Active Substance: GANCICLOVIR
     Indication: OPHTHALMIC HERPES SIMPLEX
     Dosage: 300 MG TWICE A DAY
     Route: 042
  3. ACICLOVIR [Suspect]
     Active Substance: ACYCLOVIR
     Indication: OPHTHALMIC HERPES SIMPLEX
     Dosage: 1000 MG INTRAVENOUS 3 TIMES A DAY
     Route: 042
  4. ACICLOVIR [Suspect]
     Active Substance: ACYCLOVIR
     Indication: OPHTHALMIC HERPES SIMPLEX
     Dosage: 800 MG 5 TIMES A DAY
     Route: 048
  5. PREDNISONE. [Concomitant]
     Active Substance: PREDNISONE
     Indication: OPHTHALMIC HERPES SIMPLEX
     Dosage: IN DECREASING DOSES
     Route: 065
  6. TROPICAMIDE. [Concomitant]
     Active Substance: TROPICAMIDE
     Indication: OPHTHALMIC HERPES SIMPLEX
  7. DEXAMETHASONE. [Concomitant]
     Active Substance: DEXAMETHASONE
     Indication: OPHTHALMIC HERPES SIMPLEX
  8. PHENYLEPHRINE [Concomitant]
     Active Substance: PHENYLEPHRINE HYDROCHLORIDE
     Indication: OPHTHALMIC HERPES SIMPLEX
  9. ACICLOVIR [Suspect]
     Active Substance: ACYCLOVIR
     Indication: OPHTHALMIC HERPES SIMPLEX

REACTIONS (5)
  - Necrotising retinitis [Not Recovered/Not Resolved]
  - Product use in unapproved indication [Recovered/Resolved]
  - Visual acuity reduced [Not Recovered/Not Resolved]
  - Cataract subcapsular [Not Recovered/Not Resolved]
  - Tractional retinal detachment [Not Recovered/Not Resolved]
